FAERS Safety Report 5444420-5 (Version None)
Quarter: 2007Q3

REPORT INFORMATION
  Report Type: 
  Country: None (occurrence: None)
  Receive Date: 20070831
  Receipt Date: 20070815
  Transmission Date: 20080115
  Serious: No
  Sender: FDA-Public Use
  Company Number: 2007AP000906

PATIENT
  Age: 58 Year
  Sex: Female

DRUGS (2)
  1. PRAVASTATIN [Suspect]
     Dosage: 40 MG; TAB; QD
     Dates: start: 20061201, end: 20070301
  2. ISOSORBIDE MONONITRATE              (ISOSORIDE MONONITRATE) [Concomitant]

REACTIONS (3)
  - ARTHRITIS [None]
  - DISTURBANCE IN ATTENTION [None]
  - MYALGIA [None]
